FAERS Safety Report 19922954 (Version 4)
Quarter: 2021Q4

REPORT INFORMATION
  Report Type: Spontaneous
  Country: US (occurrence: US)
  Receive Date: 20211006
  Receipt Date: 20211113
  Transmission Date: 20220303
  Serious: Yes (Other)
  Sender: FDA-Public Use
  Company Number: US-ROCHE-2926914

PATIENT
  Sex: Female
  Weight: 49.032 kg

DRUGS (5)
  1. XOLAIR [Suspect]
     Active Substance: OMALIZUMAB
     Indication: Urticaria
     Dosage: TWO INJECTIONS, ONE IN RIGHT SHOULDER AND ONE IN LEFT SHOULDER
     Route: 058
     Dates: start: 20210621
  2. SYNTHROID [Concomitant]
     Active Substance: LEVOTHYROXINE SODIUM
     Route: 048
  3. CALCIUM [Concomitant]
     Active Substance: CALCIUM
     Route: 048
  4. FISH OIL [Concomitant]
     Active Substance: FISH OIL
     Route: 048
  5. TRIPLE ACTION JOINT HEALTH [Concomitant]
     Route: 048

REACTIONS (8)
  - Ear infection [Recovering/Resolving]
  - Hypoacusis [Unknown]
  - Ear pruritus [Unknown]
  - Arthralgia [Not Recovered/Not Resolved]
  - Inflammation [Unknown]
  - Pain [Unknown]
  - Rash [Unknown]
  - Temperature intolerance [Not Recovered/Not Resolved]
